FAERS Safety Report 4539425-2 (Version None)
Quarter: 2004Q4

REPORT INFORMATION
  Report Type: 
  Country: None (occurrence: None)
  Receive Date: 20041222
  Receipt Date: 20041213
  Transmission Date: 20050328
  Serious: No
  Sender: FDA-Public Use
  Company Number: 2004GB03104

PATIENT
  Age: 77 Year
  Sex: Female

DRUGS (1)
  1. OMEPRAZOLE [Suspect]
     Dosage: 1 DF DAILY PO
     Route: 048

REACTIONS (3)
  - CYANOSIS [None]
  - MYOCARDIAL INFARCTION [None]
  - SPEECH DISORDER [None]
